FAERS Safety Report 15509650 (Version 1)
Quarter: 2018Q4

REPORT INFORMATION
  Report Type: Spontaneous
  Country: US (occurrence: US)
  Receive Date: 20181017
  Receipt Date: 20181017
  Transmission Date: 20190205
  Serious: Yes (Death)
  Sender: FDA-Public Use
  Company Number: None

PATIENT
  Sex: Male

DRUGS (12)
  1. MAGNESIUM [Concomitant]
     Active Substance: MAGNESIUM
  2. POTASSIUM [Concomitant]
     Active Substance: POTASSIUM
  3. BUMETANIDE. [Concomitant]
     Active Substance: BUMETANIDE
  4. LEVOTHYROXIN [Concomitant]
     Active Substance: LEVOTHYROXINE
  5. LUPRON DEPOT [Suspect]
     Active Substance: LEUPROLIDE ACETATE
     Indication: PROSTATE CANCER
     Dosage: 30 MG Q 4 MONTHS; INTRAMUSCULAR
     Route: 030
     Dates: start: 20160927
  6. ALLOPURINOL. [Concomitant]
     Active Substance: ALLOPURINOL
  7. FINASTERIDE. [Concomitant]
     Active Substance: FINASTERIDE
  8. TAMSULOSIN [Concomitant]
     Active Substance: TAMSULOSIN
  9. VITAMIN D3 [Concomitant]
     Active Substance: CHOLECALCIFEROL
  10. FERROUS SULF [Concomitant]
     Active Substance: FERROUS SULFATE
  11. METOPROLOL TARTRATE. [Concomitant]
     Active Substance: METOPROLOL TARTRATE
  12. ASPIRIN. [Concomitant]
     Active Substance: ASPIRIN

REACTIONS (1)
  - Death [None]
